FAERS Safety Report 14348670 (Version 1)
Quarter: 2018Q1

REPORT INFORMATION
  Report Type: Spontaneous
  Country: US (occurrence: US)
  Receive Date: 20180104
  Receipt Date: 20180104
  Transmission Date: 20180509
  Serious: Yes (Death, Other)
  Sender: FDA-Public Use
  Company Number: PHHY2017US194302

PATIENT
  Age: 10 Year
  Sex: Male

DRUGS (1)
  1. VORICONAZOLE. [Suspect]
     Active Substance: VORICONAZOLE
     Indication: TRICHOSPORON INFECTION
     Dosage: 9 MG/KG, Q12H
     Route: 065

REACTIONS (4)
  - Renal failure [Fatal]
  - Neutropenia [Unknown]
  - Pyrexia [Unknown]
  - Respiratory failure [Fatal]
